FAERS Safety Report 6991925-1 (Version None)
Quarter: 2010Q3

REPORT INFORMATION
  Report Type: 
  Country: None (occurrence: None)
  Receive Date: 20100917
  Receipt Date: 20100909
  Transmission Date: 20110219
  Serious: Yes (Other)
  Sender: FDA-Public Use
  Company Number: PHHY2010BR59891

PATIENT
  Age: 96 Year
  Sex: Female

DRUGS (5)
  1. EXELON [Suspect]
  2. HYGROTON [Suspect]
  3. LEPONEX [Suspect]
     Dosage: 100 MG
  4. LEPONEX [Suspect]
     Dosage: 25 MG
  5. CARVEDILOL [Suspect]
     Dosage: UNK

REACTIONS (2)
  - SHOCK [None]
  - SYNCOPE [None]
